FAERS Safety Report 9444059 (Version 1)
Quarter: 2013Q3

REPORT INFORMATION
  Report Type: Spontaneous
  Country: US (occurrence: None)
  Receive Date: 20130806
  Receipt Date: 20130806
  Transmission Date: 20140515
  Serious: No
  Sender: FDA-Public Use
  Company Number: None

PATIENT
  Age: 45 Year
  Sex: Female

DRUGS (1)
  1. HUMIRA [Suspect]
     Indication: CROHN^S DISEASE
     Dosage: 40MG  Q0W  SQ
     Route: 058
     Dates: start: 20120806, end: 20130715

REACTIONS (4)
  - Fatigue [None]
  - Diarrhoea [None]
  - Weight decreased [None]
  - Arthralgia [None]
